FAERS Safety Report 8266993-X (Version None)
Quarter: 2012Q2

REPORT INFORMATION
  Report Type: 
  Country: None (occurrence: None)
  Receive Date: 20120409
  Receipt Date: 20120404
  Transmission Date: 20120825
  Serious: Yes (Hospitalization)
  Sender: FDA-Public Use
  Company Number: US-PFIZER INC-2012014509

PATIENT
  Sex: Female

DRUGS (2)
  1. SUTENT [Suspect]
     Dosage: 50 MG, EVERY OTHER DAY
     Dates: start: 20120210
  2. SUTENT [Suspect]
     Indication: RENAL CELL CARCINOMA
     Dosage: 50 MG, DAILY
     Route: 048
     Dates: start: 20120118, end: 20120127

REACTIONS (7)
  - COUGH [None]
  - NAUSEA [None]
  - ASTHENIA [None]
  - DYSGEUSIA [None]
  - DECREASED APPETITE [None]
  - DYSPNOEA [None]
  - VOMITING [None]
